FAERS Safety Report 4640499-9 (Version None)
Quarter: 2005Q2

REPORT INFORMATION
  Report Type: 
  Country: None (occurrence: None)
  Receive Date: 20050419
  Receipt Date: 20050408
  Transmission Date: 20051028
  Serious: Yes (Hospitalization, Other)
  Sender: FDA-Public Use
  Company Number: KII-2005-0015967

PATIENT
  Age: 48 Year
  Sex: Female

DRUGS (3)
  1. OXYCODONE HCL [Suspect]
     Indication: PAIN
     Dosage: ORAL
     Route: 048
  2. CARISOPRODOL [Suspect]
     Indication: PAIN
     Dosage: ORAL
     Route: 048
  3. BENZODIAZEPINE DERIVATIVES() [Suspect]

REACTIONS (10)
  - APHASIA [None]
  - BLOOD CREATINE PHOSPHOKINASE INCREASED [None]
  - BLOOD CREATINE PHOSPHOKINASE MB INCREASED [None]
  - BLOOD GLUCOSE INCREASED [None]
  - BLOOD POTASSIUM DECREASED [None]
  - COMA [None]
  - MENTAL DISORDER [None]
  - OPIATES POSITIVE [None]
  - PUPILLARY REFLEX IMPAIRED [None]
  - SINUS TACHYCARDIA [None]
